FAERS Safety Report 11069204 (Version 1)
Quarter: 2015Q2

REPORT INFORMATION
  Report Type: Spontaneous
  Country: CN (occurrence: CN)
  Receive Date: 20150427
  Receipt Date: 20150427
  Transmission Date: 20150821
  Serious: Yes (Other)
  Sender: FDA-Public Use
  Company Number: CN-BAYER-2014-112453

PATIENT
  Sex: Female

DRUGS (1)
  1. CANESTEN (KAINITING) [Suspect]
     Active Substance: CLOTRIMAZOLE
     Indication: VULVOVAGINAL CANDIDIASIS
     Dosage: UNK, UNK
     Dates: start: 20140725

REACTIONS (2)
  - Maternal exposure during pregnancy [None]
  - Premature labour [None]

NARRATIVE: CASE EVENT DATE: 201408
